FAERS Safety Report 9405937 (Version 1)
Quarter: 2013Q3

REPORT INFORMATION
  Report Type: Spontaneous
  Country: US (occurrence: US)
  Receive Date: 20130717
  Receipt Date: 20130717
  Transmission Date: 20140515
  Serious: No
  Sender: FDA-Public Use
  Company Number: US-TEVA-419209USA

PATIENT
  Sex: Female

DRUGS (1)
  1. NUVIGIL [Suspect]

REACTIONS (4)
  - Bruxism [Not Recovered/Not Resolved]
  - Feeling jittery [Not Recovered/Not Resolved]
  - Tremor [Not Recovered/Not Resolved]
  - Disturbance in attention [Not Recovered/Not Resolved]
